FAERS Safety Report 10401534 (Version 2)
Quarter: 2014Q4

REPORT INFORMATION
  Report Type: Spontaneous
  Country: FR (occurrence: FR)
  Receive Date: 20140822
  Receipt Date: 20141104
  Transmission Date: 20150528
  Serious: Yes (Other)
  Sender: FDA-Public Use
  Company Number: FR-ACCORD-025494

PATIENT
  Age: 60 Year
  Sex: Female

DRUGS (6)
  1. ALLERGODIL [Concomitant]
     Active Substance: AZELASTINE
  2. SOLUPRED [Suspect]
     Active Substance: PREDNISOLONE
     Indication: PREMEDICATION
     Route: 048
     Dates: start: 20140716, end: 20140720
  3. AERIUS [Concomitant]
     Active Substance: DESLORATADINE
  4. EMEND [Concomitant]
     Active Substance: APREPITANT
     Indication: VOMITING
  5. NORPROLAC [Concomitant]
     Active Substance: QUINAGOLIDE HYDROCHLORIDE
  6. DOCETAXEL ACCORD [Suspect]
     Active Substance: DOCETAXEL
     Indication: BREAST CANCER
     Dosage: 20 MG/ 1 ML, SINGLE INTAKE IN ONE CYCLE
     Route: 042
     Dates: start: 20140717, end: 20140717

REACTIONS (5)
  - Palmar-plantar erythrodysaesthesia syndrome [Recovering/Resolving]
  - Aphthous stomatitis [Recovering/Resolving]
  - Oral fungal infection [Recovering/Resolving]
  - Arthralgia [Recovering/Resolving]
  - Vomiting [Unknown]

NARRATIVE: CASE EVENT DATE: 20140722
